FAERS Safety Report 17558012 (Version 1)
Quarter: 2020Q1

REPORT INFORMATION
  Report Type: Spontaneous
  Country: US (occurrence: US)
  Receive Date: 20200318
  Receipt Date: 20200318
  Transmission Date: 20200409
  Serious: No
  Sender: FDA-Public Use
  Company Number: US-TEVA-2020-US-1202439

PATIENT
  Sex: Female

DRUGS (1)
  1. DILTIAZEM. [Suspect]
     Active Substance: DILTIAZEM
     Indication: BLOOD PRESSURE ABNORMAL
     Route: 065
     Dates: start: 201909

REACTIONS (4)
  - Rash [Recovered/Resolved]
  - Constipation [Recovered/Resolved]
  - Dizziness [Recovered/Resolved]
  - Product substitution issue [Unknown]
